FAERS Safety Report 9220098 (Version 3)
Quarter: 2013Q2

REPORT INFORMATION
  Report Type: Spontaneous
  Country: JP (occurrence: None)
  Receive Date: 20130405
  Receipt Date: 20130611
  Transmission Date: 20140414
  Serious: Yes (Hospitalization)
  Sender: FDA-Public Use
  Company Number: JP-20130025

PATIENT
  Age: 70 Year
  Sex: Female

DRUGS (3)
  1. LIPIODOL ULTRA FLUIDE [Suspect]
     Indication: THERAPEUTIC EMBOLISATION
     Route: 013
  2. EPIRUBICIN [Suspect]
     Indication: THERAPEUTIC EMBOLISATION
     Route: 013
  3. GELPART [Suspect]
     Indication: THERAPEUTIC EMBOLISATION
     Route: 013

REACTIONS (4)
  - Jaundice cholestatic [None]
  - Off label use [None]
  - Abdominal pain [None]
  - Hepatic enzyme increased [None]
